FAERS Safety Report 7699198-1 (Version None)
Quarter: 2011Q3

REPORT INFORMATION
  Report Type: 
  Country: None (occurrence: None)
  Receive Date: 20110819
  Receipt Date: 20110816
  Transmission Date: 20111222
  Serious: No
  Sender: FDA-Public Use
  Company Number: US-BAYER-2011-064109

PATIENT
  Age: 29 Year
  Sex: Female
  Weight: 104 kg

DRUGS (3)
  1. IBUPROFEN [Concomitant]
  2. INTERFERON BETA-1B [Suspect]
     Indication: RELAPSING-REMITTING MULTIPLE SCLEROSIS
     Dosage: 2 MIU, QOD
     Route: 058
     Dates: start: 20110719
  3. INTERFERON BETA-1B [Suspect]
     Dosage: 6 MIU, QOD
     Route: 058

REACTIONS (11)
  - HYPERHIDROSIS [None]
  - CHILLS [None]
  - BURNING SENSATION [None]
  - MIDDLE INSOMNIA [None]
  - PAIN [None]
  - INJECTION SITE ERYTHEMA [None]
  - INJECTION SITE PAIN [None]
  - INJECTION SITE REACTION [None]
  - PARAESTHESIA [None]
  - INFLUENZA LIKE ILLNESS [None]
  - NAUSEA [None]
